FAERS Safety Report 4349384-3 (Version None)
Quarter: 2004Q2

REPORT INFORMATION
  Report Type: 
  Country: None (occurrence: None)
  Receive Date: 20040428
  Receipt Date: 20040319
  Transmission Date: 20050107
  Serious: Yes (Hospitalization)
  Sender: FDA-Public Use
  Company Number: US-GLAXOSMITHKLINE-A0503538A

PATIENT
  Age: 81 Year
  Sex: Female

DRUGS (4)
  1. FLONASE [Suspect]
     Dosage: 1SPR TWICE PER DAY
     Route: 045
  2. ALLEGRA [Concomitant]
  3. TYLENOL (CAPLET) [Concomitant]
  4. METOPROLOL [Concomitant]

REACTIONS (2)
  - LOSS OF CONSCIOUSNESS [None]
  - SYNCOPE [None]
